FAERS Safety Report 10083575 (Version 1)
Quarter: 2014Q2

REPORT INFORMATION
  Report Type: Spontaneous
  Country: TW (occurrence: None)
  Receive Date: 20140415
  Receipt Date: 20140415
  Transmission Date: 20141212
  Serious: Yes (Hospitalization)
  Sender: FDA-Public Use
  Company Number: 2014P1002926

PATIENT
  Age: 49 Year
  Sex: Female

DRUGS (2)
  1. DIPHENHYDRAMINE [Suspect]
     Indication: URTICARIA
     Route: 030
  2. DIPHENHYDRAMINE [Suspect]
     Indication: INSOMNIA
     Route: 030

REACTIONS (13)
  - Drug withdrawal syndrome [None]
  - Injection site pain [None]
  - Injection site swelling [None]
  - Drug dependence [None]
  - Drug abuse [None]
  - Impaired self-care [None]
  - Oedema peripheral [None]
  - Gait disturbance [None]
  - Major depression [None]
  - Muscle necrosis [None]
  - Electrocardiogram QT prolonged [None]
  - Fibrin D dimer increased [None]
  - Injection site warmth [None]
